FAERS Safety Report 15245270 (Version 1)
Quarter: 2018Q3

REPORT INFORMATION
  Report Type: Spontaneous
  Country: US (occurrence: US)
  Receive Date: 20180713
  Receipt Date: 20180713
  Transmission Date: 20181010
  Serious: No
  Sender: FDA-Public Use
  Company Number: None

PATIENT
  Age: 3 Year
  Sex: Male
  Weight: 18 kg

DRUGS (1)
  1. ALBUTEROL SUL 1.2MG/3 ML SOL [Suspect]
     Active Substance: ALBUTEROL SULFATE
     Indication: COUGH
     Dosage: ?          QUANTITY:75 VIAL;?
     Route: 055
     Dates: start: 20180701, end: 20180708

REACTIONS (2)
  - Expired product administered [None]
  - Drug dispensing error [None]

NARRATIVE: CASE EVENT DATE: 20180701
